FAERS Safety Report 19106194 (Version 4)
Quarter: 2021Q3

REPORT INFORMATION
  Report Type: Report from Study
  Country: US (occurrence: US)
  Receive Date: 20210407
  Receipt Date: 20210721
  Transmission Date: 20211014
  Serious: No
  Sender: FDA-Public Use
  Company Number: NVSC2021US072535

PATIENT
  Age: 47 Year
  Sex: Female

DRUGS (1)
  1. KESIMPTA [Suspect]
     Active Substance: OFATUMUMAB
     Indication: RELAPSING MULTIPLE SCLEROSIS
     Dosage: 20 MG, QW (SOLUTION) (BENEATH THE SKIN)
     Route: 058
     Dates: start: 20210320

REACTIONS (9)
  - Pyrexia [Recovered/Resolved]
  - Pain [Recovered/Resolved]
  - Pyrexia [Recovering/Resolving]
  - Abdominal distension [Recovering/Resolving]
  - Fatigue [Recovered/Resolved]
  - Weight increased [Recovering/Resolving]
  - Cystitis [Unknown]
  - Headache [Recovering/Resolving]
  - Splenomegaly [Unknown]

NARRATIVE: CASE EVENT DATE: 20210320
